FAERS Safety Report 9760325 (Version 2)
Quarter: 2013Q4

REPORT INFORMATION
  Report Type: Spontaneous
  Country: US (occurrence: US)
  Receive Date: 20131216
  Receipt Date: 20131216
  Transmission Date: 20140711
  Serious: No
  Sender: FDA-Public Use
  Company Number: US-GILEAD-2010-0028985

PATIENT
  Sex: Female

DRUGS (12)
  1. LETAIRIS [Suspect]
     Indication: PULMONARY ARTERIAL HYPERTENSION
     Route: 048
     Dates: start: 20100412, end: 20100417
  2. ASPIRIN [Concomitant]
  3. CALCIUM + D [Concomitant]
  4. ARICEPT [Concomitant]
  5. VERAPAMIL [Concomitant]
  6. SPIRONOLACT [Concomitant]
  7. NEXIUM [Concomitant]
  8. AMIODARONE [Concomitant]
  9. SYNTHROID [Concomitant]
  10. CENTRUM [Concomitant]
  11. LASIX [Concomitant]
  12. ZYRTEC [Concomitant]

REACTIONS (3)
  - Lacrimation increased [Unknown]
  - Oropharyngeal pain [Unknown]
  - Swelling [Unknown]
